FAERS Safety Report 12375535 (Version 2)
Quarter: 2016Q2

REPORT INFORMATION
  Report Type: Report from Study
  Country: DE (occurrence: DE)
  Receive Date: 20160517
  Receipt Date: 20160623
  Transmission Date: 20160815
  Serious: Yes (Hospitalization)
  Sender: FDA-Public Use
  Company Number: DE-CELGENEUS-DEU-2015074314

PATIENT
  Age: 77 Year
  Sex: Female
  Weight: 84 kg

DRUGS (16)
  1. TORASEMID [Concomitant]
     Active Substance: TORSEMIDE
     Indication: HYPERTENSION
     Dosage: 40 MILLIGRAM
     Route: 048
     Dates: start: 2008
  2. SPIRIVA [Concomitant]
     Active Substance: TIOTROPIUM BROMIDE MONOHYDRATE
     Indication: DYSPNOEA
     Dosage: 4 MILLIGRAM
     Route: 065
     Dates: start: 201310
  3. ALDACTONE [Concomitant]
     Active Substance: SPIRONOLACTONE
     Indication: HYPERTENSION
     Dosage: 3 MILLIGRAM
     Route: 048
     Dates: start: 2008
  4. XGEVA [Concomitant]
     Active Substance: DENOSUMAB
     Indication: PLASMACYTOMA
     Dosage: 95 MILLIGRAM
     Route: 041
     Dates: start: 20120224
  5. VIGANTOLETTEN [Concomitant]
     Active Substance: CHOLECALCIFEROL
     Indication: VITAMIN SUPPLEMENTATION
     Route: 041
     Dates: start: 20130912
  6. POMALIDOMIDE [Suspect]
     Active Substance: POMALIDOMIDE
     Indication: PLASMA CELL MYELOMA
     Route: 048
     Dates: start: 20140219, end: 20140311
  7. PANTOPRAZOL [Concomitant]
     Active Substance: PANTOPRAZOLE SODIUM
     Indication: GASTRITIS PROPHYLAXIS
     Route: 048
     Dates: start: 1998
  8. MARCUMAR [Concomitant]
     Active Substance: PHENPROCOUMON
     Indication: HYPERTENSION
     Dosage: 1500 MILLIGRAM
     Route: 048
     Dates: start: 2008
  9. DEXAMETHASONE. [Suspect]
     Active Substance: DEXAMETHASONE
     Route: 065
     Dates: start: 20141224, end: 20150114
  10. METOPROLOL. [Concomitant]
     Active Substance: METOPROLOL
     Indication: HYPERTENSION
     Dosage: 20 MILLIGRAM
     Route: 048
     Dates: start: 2008
  11. LYRICA [Concomitant]
     Active Substance: PREGABALIN
     Indication: RESTLESS LEGS SYNDROME
     Dosage: 120 MILLIGRAM
     Route: 048
     Dates: start: 2013
  12. NOVAMINSULFON [Concomitant]
     Active Substance: METAMIZOLE
     Indication: RHEUMATOID ARTHRITIS
     Route: 048
     Dates: start: 1998
  13. LYRICA [Concomitant]
     Active Substance: PREGABALIN
     Indication: POLYNEUROPATHY
     Dosage: 25 MILLIGRAM
     Route: 048
     Dates: start: 2013
  14. ROTIGOTIN [Concomitant]
     Indication: RESTLESS LEGS SYNDROME
     Dosage: 1000 IU (INTERNATIONAL UNIT)
     Route: 041
     Dates: start: 201310
  15. POMALIDOMIDE [Suspect]
     Active Substance: POMALIDOMIDE
     Route: 048
     Dates: start: 20141224, end: 20150113
  16. DEXAMETHASONE. [Suspect]
     Active Substance: DEXAMETHASONE
     Indication: PLASMA CELL MYELOMA
     Route: 065
     Dates: start: 20140220, end: 20140312

REACTIONS (2)
  - Erysipelas [Recovered/Resolved]
  - Vasculitis necrotising [Recovered/Resolved]

NARRATIVE: CASE EVENT DATE: 20150109
